FAERS Safety Report 19795122 (Version 1)
Quarter: 2021Q3

REPORT INFORMATION
  Report Type: Spontaneous
  Country: US (occurrence: US)
  Receive Date: 20210903
  Receipt Date: 20210903
  Transmission Date: 20211014
  Serious: Yes (Other)
  Sender: FDA-Public Use
  Company Number: None

PATIENT
  Sex: Male
  Weight: 83.3 kg

DRUGS (23)
  1. DEXAMETHASONE. [Concomitant]
     Active Substance: DEXAMETHASONE
     Dates: start: 20210824, end: 20210901
  2. FLUOXETINE (HOME MEDICATION) [Concomitant]
  3. GUAIFENESIN?CODEINE (100MG/10MG/5ML) [Concomitant]
     Dates: start: 20210824, end: 20210826
  4. CISATRACURIUM. [Concomitant]
     Active Substance: CISATRACURIUM
     Dates: start: 20210829
  5. FAMOTIDINE. [Concomitant]
     Active Substance: FAMOTIDINE
     Dates: start: 20210826
  6. FENOFIBRATE. [Concomitant]
     Active Substance: FENOFIBRATE
     Dates: start: 20210830, end: 20210901
  7. MELATONIN [Concomitant]
     Active Substance: MELATONIN
     Dates: start: 20210824
  8. BENZONATATE. [Concomitant]
     Active Substance: BENZONATATE
     Dates: start: 20210825, end: 20210826
  9. DEXMEDETOMIDINE. [Concomitant]
     Active Substance: DEXMEDETOMIDINE
     Dates: start: 20210826
  10. FENTANYL. [Concomitant]
     Active Substance: FENTANYL
     Dates: start: 20210826
  11. BARICITINIB. [Suspect]
     Active Substance: BARICITINIB
     Indication: OFF LABEL USE
     Route: 048
     Dates: start: 20210825, end: 20210831
  12. REMDESIVIR. [Concomitant]
     Active Substance: REMDESIVIR
     Dates: start: 20210824, end: 20210828
  13. MIDAZOLAM. [Concomitant]
     Active Substance: MIDAZOLAM
     Dates: start: 20210827
  14. NOREPINEPHRINE. [Concomitant]
     Active Substance: NOREPINEPHRINE
  15. OXYCODONE [Concomitant]
     Active Substance: OXYCODONE
     Dates: start: 20210824, end: 20210901
  16. CHLORHEXIDINE [Concomitant]
     Active Substance: CHLORHEXIDINE
     Dates: start: 20210826
  17. ENOXAPARIN [Concomitant]
     Active Substance: ENOXAPARIN
     Dates: start: 20210825
  18. OLANZAPINE. [Concomitant]
     Active Substance: OLANZAPINE
     Dates: start: 20210826, end: 20210831
  19. SENNA [Concomitant]
     Active Substance: SENNA LEAF\SENNOSIDES\SENNOSIDES A AND B
     Dates: start: 20210827, end: 20210901
  20. BARICITINIB. [Suspect]
     Active Substance: BARICITINIB
     Indication: COVID-19
     Route: 048
     Dates: start: 20210825, end: 20210831
  21. PROPOFOL. [Concomitant]
     Active Substance: PROPOFOL
     Dates: start: 20210826, end: 20210830
  22. AZITHROMYCIN ANHYDROUS. [Concomitant]
     Active Substance: AZITHROMYCIN ANHYDROUS
     Dates: start: 20210823, end: 20210827
  23. CEFTRIAXONE. [Concomitant]
     Active Substance: CEFTRIAXONE
     Dates: start: 20210825, end: 20210829

REACTIONS (2)
  - Liver function test increased [None]
  - Respiratory failure [None]
